FAERS Safety Report 9988775 (Version 1)
Quarter: 2013Q4

REPORT INFORMATION
  Report Type: Spontaneous
  Country: TH (occurrence: None)
  Receive Date: 20131009
  Receipt Date: 20131009
  Transmission Date: 20140711
  Serious: Yes (Other)
  Sender: FDA-Public Use
  Company Number: TH-20130001

PATIENT
  Age: 63 Year
  Sex: Female

DRUGS (4)
  1. LIPIODOL [Suspect]
     Indication: THERAPEUTIC EMBOLISATION
     Route: 013
  2. OMNIPAQUE (IOHEXOL)(IOHEXOL) [Concomitant]
  3. MITOMYCIN-C (MITOMYCIN)(MITOMYCIN) [Concomitant]
  4. 5-FU (FLUOROURACIL)(FLUOROURACIL) [Concomitant]

REACTIONS (3)
  - Pulmonary oil microembolism [None]
  - Post embolisation syndrome [None]
  - Off label use [None]
